FAERS Safety Report 4876196-4 (Version None)
Quarter: 2006Q1

REPORT INFORMATION
  Report Type: 
  Country: None (occurrence: None)
  Receive Date: 20060110
  Receipt Date: 20060105
  Transmission Date: 20060701
  Serious: Yes (Hospitalization, Disabling)
  Sender: FDA-Public Use
  Company Number: JP-JNJFOC-20060100759

PATIENT
  Age: 59 Year
  Sex: Male

DRUGS (1)
  1. TAVANIC [Suspect]
     Indication: URINARY TRACT INFECTION
     Route: 048
     Dates: start: 20050507, end: 20050522

REACTIONS (1)
  - POLYMYOSITIS [None]
